FAERS Safety Report 8856593 (Version 1)
Quarter: 2012Q4

REPORT INFORMATION
  Report Type: 
  Country: US (occurrence: US)
  Receive Date: 20121023
  Receipt Date: 20121023
  Transmission Date: 20130627
  Serious: No
  Sender: FDA-Public Use
  Company Number: US-AMGEN-USASP2012056789

PATIENT
  Age: 4 Year
  Sex: Male

DRUGS (1)
  1. ENBREL [Suspect]
     Indication: PRODUCT USED FOR UNKNOWN INDICATION
     Dosage: 15 mg, UNK

REACTIONS (4)
  - Incorrect dose administered [Unknown]
  - Urinary tract infection [Unknown]
  - Impaired healing [Unknown]
  - Nasopharyngitis [Unknown]
